FAERS Safety Report 7586011-6 (Version None)
Quarter: 2011Q2

REPORT INFORMATION
  Report Type: 
  Country: None (occurrence: None)
  Receive Date: 20110603
  Receipt Date: 20110510
  Transmission Date: 20111010
  Serious: No
  Sender: FDA-Public Use
  Company Number: 2011SP021697

PATIENT
  Age: 53 Year
  Sex: Female

DRUGS (5)
  1. WELLBUTRIN [Concomitant]
  2. SAPHRIS [Suspect]
     Indication: POST-TRAUMATIC STRESS DISORDER
     Dosage: 10 MG;QD;SL ; 5 MG;QAM;SL
     Route: 060
     Dates: start: 20110510
  3. SAPHRIS [Suspect]
     Indication: BIPOLAR DISORDER
     Dosage: 10 MG;QD;SL ; 5 MG;QAM;SL
     Route: 060
     Dates: start: 20110510
  4. SAPHRIS [Suspect]
     Indication: POST-TRAUMATIC STRESS DISORDER
     Dosage: 10 MG;QD;SL ; 5 MG;QAM;SL
     Route: 060
     Dates: start: 20110504, end: 20110510
  5. SAPHRIS [Suspect]
     Indication: BIPOLAR DISORDER
     Dosage: 10 MG;QD;SL ; 5 MG;QAM;SL
     Route: 060
     Dates: start: 20110504, end: 20110510

REACTIONS (3)
  - RESTLESS LEGS SYNDROME [None]
  - UNDERDOSE [None]
  - INAPPROPRIATE SCHEDULE OF DRUG ADMINISTRATION [None]
